FAERS Safety Report 4700951-4 (Version None)
Quarter: 2005Q2

REPORT INFORMATION
  Report Type: 
  Country: None (occurrence: None)
  Receive Date: 20050628
  Receipt Date: 20041224
  Transmission Date: 20051028
  Serious: Yes (Other)
  Sender: FDA-Public Use
  Company Number: PHRM2004FR03766

PATIENT
  Age: 68 Year
  Sex: Male

DRUGS (1)
  1. LAMISIL [Suspect]
     Indication: NAIL TINEA
     Dosage: 250 MG, QD
     Route: 048
     Dates: start: 20030429, end: 20040701

REACTIONS (3)
  - DYSPNOEA [None]
  - FATIGUE [None]
  - INTERSTITIAL LUNG DISEASE [None]
